FAERS Safety Report 11204234 (Version 1)
Quarter: 2015Q2

REPORT INFORMATION
  Report Type: Spontaneous
  Country: BE (occurrence: BE)
  Receive Date: 20150620
  Receipt Date: 20150620
  Transmission Date: 20150821
  Serious: Yes (Hospitalization, Other)
  Sender: FDA-Public Use
  Company Number: BE-ABBVIE-15K-013-1410120-00

PATIENT
  Age: 81 Year

DRUGS (3)
  1. ROACTEMRA [Concomitant]
     Active Substance: TOCILIZUMAB
     Indication: RHEUMATOID ARTHRITIS
     Dates: start: 200909, end: 201312
  2. PREDNISOLONE. [Concomitant]
     Active Substance: PREDNISOLONE
     Indication: PRODUCT USED FOR UNKNOWN INDICATION
     Dates: start: 200801
  3. HUMIRA [Suspect]
     Active Substance: ADALIMUMAB
     Indication: RHEUMATOID ARTHRITIS
     Route: 065
     Dates: start: 2004

REACTIONS (12)
  - Arthritis bacterial [Unknown]
  - Transient ischaemic attack [Unknown]
  - Device related infection [Unknown]
  - Presyncope [Unknown]
  - Septic embolus [Unknown]
  - Musculoskeletal pain [Unknown]
  - Hypertension [Unknown]
  - Malaise [Unknown]
  - Upper limb fracture [Unknown]
  - Confusional state [Unknown]
  - Bradycardia [Unknown]
  - Endocarditis staphylococcal [Unknown]

NARRATIVE: CASE EVENT DATE: 2009
